FAERS Safety Report 25958276 (Version 2)
Quarter: 2025Q4

REPORT INFORMATION
  Report Type: Spontaneous
  Country: CN (occurrence: CN)
  Receive Date: 20251024
  Receipt Date: 20251031
  Transmission Date: 20260117
  Serious: Yes (Other)
  Sender: NOVARTIS
  Company Number: CN-002147023-NVSC2025CN161455

PATIENT
  Age: 47 Year
  Sex: Female
  Weight: 52 kg

DRUGS (8)
  1. KISQALI [Suspect]
     Active Substance: RIBOCICLIB SUCCINATE
     Indication: HER2 negative breast cancer
     Dosage: 600 MG, QD
     Route: 048
     Dates: start: 20250909, end: 20250930
  2. KISQALI [Suspect]
     Active Substance: RIBOCICLIB SUCCINATE
     Indication: Breast cancer metastatic
  3. FEMARA [Concomitant]
     Active Substance: LETROZOLE
     Indication: HER2 negative breast cancer
     Dosage: 2.5 MG, QD
     Route: 048
     Dates: start: 20250909, end: 20251011
  4. FEMARA [Concomitant]
     Active Substance: LETROZOLE
     Indication: Breast cancer metastatic
  5. GOSERELIN [Concomitant]
     Active Substance: GOSERELIN
     Indication: Human epidermal growth factor receptor negative
     Dosage: 3.6 MG, Q4W
     Route: 065
     Dates: start: 20250715
  6. GOSERELIN [Concomitant]
     Active Substance: GOSERELIN
     Indication: Breast cancer metastatic
  7. DENOSUMAB [Concomitant]
     Active Substance: DENOSUMAB
     Indication: HER2 negative breast cancer
     Dosage: 120 MG, Q4W
     Route: 065
     Dates: start: 20250715
  8. DENOSUMAB [Concomitant]
     Active Substance: DENOSUMAB
     Indication: Breast cancer metastatic

REACTIONS (1)
  - Myelosuppression [Recovering/Resolving]

NARRATIVE: CASE EVENT DATE: 20251009
